FAERS Safety Report 22261457 (Version 2)
Quarter: 2023Q2

REPORT INFORMATION
  Report Type: Spontaneous
  Country: US (occurrence: None)
  Receive Date: 20230427
  Receipt Date: 20230524
  Transmission Date: 20230721
  Serious: No
  Sender: FDA-Public Use
  Company Number: 2023A087377

PATIENT
  Sex: Female
  Weight: 63.5 kg

DRUGS (1)
  1. FASENRA [Suspect]
     Active Substance: BENRALIZUMAB
     Indication: Cough variant asthma
     Route: 058

REACTIONS (6)
  - Pruritus [Unknown]
  - Oropharyngeal pain [Unknown]
  - Dysphonia [Unknown]
  - Rash [Unknown]
  - Headache [Unknown]
  - Off label use [Unknown]
